FAERS Safety Report 6453710-9 (Version None)
Quarter: 2009Q4

REPORT INFORMATION
  Report Type: 
  Country: None (occurrence: None)
  Receive Date: 20091124
  Receipt Date: 20091117
  Transmission Date: 20100525
  Serious: Yes (Hospitalization, Other)
  Sender: FDA-Public Use
  Company Number: DE-ABBOTT-09P-062-0590900-00

PATIENT
  Sex: Female

DRUGS (10)
  1. HUMIRA [Suspect]
     Indication: RHEUMATOID ARTHRITIS
     Route: 058
     Dates: start: 20060323, end: 20090701
  2. HUMIRA [Suspect]
     Route: 058
     Dates: start: 20090831
  3. METHOTREXATE [Concomitant]
     Indication: RHEUMATOID ARTHRITIS
  4. PREDNISOLONE [Concomitant]
     Indication: RHEUMATOID ARTHRITIS
  5. FOLCUR [Concomitant]
     Indication: RHEUMATOID ARTHRITIS
  6. METAMIZOLE [Concomitant]
     Indication: PAIN
  7. FOLIN ACID [Concomitant]
     Indication: DRUG USE FOR UNKNOWN INDICATION
  8. FOLIN ACID [Concomitant]
  9. MCP [Concomitant]
     Indication: GASTROINTESTINAL MOTILITY DISORDER
     Route: 048
  10. MG 2+ [Concomitant]
     Indication: DRUG USE FOR UNKNOWN INDICATION

REACTIONS (4)
  - ABSCESS [None]
  - APPENDICITIS PERFORATED [None]
  - DIARRHOEA [None]
  - IMPAIRED HEALING [None]
